FAERS Safety Report 8696137 (Version 3)
Quarter: 2016Q2

REPORT INFORMATION
  Report Type: Report from Study
  Country: US (occurrence: US)
  Receive Date: 20120801
  Receipt Date: 20160506
  Transmission Date: 20160815
  Serious: Yes (Other)
  Sender: FDA-Public Use
  Company Number: US-009507513-1207USA010860

PATIENT

DRUGS (1)
  1. PEGINTRON [Suspect]
     Active Substance: PEGINTERFERON ALFA-2B
     Indication: BRAIN STEM GLIOMA
     Dosage: EACH CYCLE OF 0.3 MICROGRAM PER KILOGRAM, WEEKLY FOR 4 WEEKS
     Route: 058

REACTIONS (8)
  - Toxicity to various agents [Unknown]
  - Lymphopenia [Unknown]
  - Alanine aminotransferase increased [Unknown]
  - Seizure [Unknown]
  - Neutropenia [Unknown]
  - Cranial nerve disorder [Unknown]
  - Leukopenia [Unknown]
  - Pyrexia [Unknown]
